FAERS Safety Report 9632729 (Version 2)
Quarter: 2013Q4

REPORT INFORMATION
  Report Type: Spontaneous
  Country: US (occurrence: US)
  Receive Date: 20131018
  Receipt Date: 20131120
  Transmission Date: 20140711
  Serious: Yes (Hospitalization)
  Sender: FDA-Public Use
  Company Number: US-DENDREON CORPORATION-2013PROUSA03213

PATIENT
  Age: 73 Year
  Sex: Male
  Weight: 79.27 kg

DRUGS (13)
  1. PROVENGE [Suspect]
     Indication: PROSTATE CANCER METASTATIC
     Dosage: 250 ML, SINGLE
     Route: 042
     Dates: start: 20130912, end: 20130912
  2. PROVENGE [Suspect]
     Dosage: 250 ML, SINGLE
     Route: 042
     Dates: start: 20130919, end: 20130919
  3. PROVENGE [Suspect]
     Dosage: 250 ML, SINGLE
     Route: 042
     Dates: start: 20130926, end: 20130926
  4. MSIR [Suspect]
     Dosage: 1-2 TABLETS, Q 4 HOURS PRN
     Dates: start: 20131001
  5. HEPARIN SODIUM [Suspect]
     Indication: PULMONARY EMBOLISM
     Dosage: UNK
     Dates: start: 20131002
  6. HEPARIN SODIUM [Suspect]
     Indication: DEEP VEIN THROMBOSIS
  7. PREDNISONE [Concomitant]
     Dosage: 2.5 MG, QD
  8. ASPIRIN [Concomitant]
     Dosage: 81 MG, QD
  9. CALCARB WITH VITAMIN D [Concomitant]
     Dosage: 1 TABLETS, QD
  10. MULTIVITAMIN [Concomitant]
     Dosage: 1 TABLETS, QD
  11. VITAMIN C [Concomitant]
     Dosage: 240 MG, QD
  12. ZOMETA [Concomitant]
     Dosage: EVERY 4 WEEKS
  13. LUPRON [Concomitant]
     Dosage: EVERY 4 MONTHS

REACTIONS (9)
  - Pulmonary embolism [Recovering/Resolving]
  - Deep vein thrombosis [Recovering/Resolving]
  - Heparin-induced thrombocytopenia [Recovering/Resolving]
  - Loss of consciousness [Recovered/Resolved]
  - Fall [Recovered/Resolved]
  - Hypertension [Recovering/Resolving]
  - Abdominal pain [Unknown]
  - Dysuria [None]
  - Muscular weakness [Unknown]
